FAERS Safety Report 24532262 (Version 4)
Quarter: 2024Q4

REPORT INFORMATION
  Report Type: Spontaneous
  Country: IT (occurrence: IT)
  Receive Date: 20241022
  Receipt Date: 20241121
  Transmission Date: 20250114
  Serious: Yes (Other)
  Sender: NOVARTIS
  Company Number: IT-002147023-NVSC2024IT204436

PATIENT
  Sex: Female

DRUGS (3)
  1. BEOVU [Suspect]
     Active Substance: BROLUCIZUMAB-DBLL
     Indication: Product used for unknown indication
     Dosage: UNK (LEFT EYE) (RIGHT EYE)
     Route: 065
     Dates: start: 20240613
  2. BEOVU [Suspect]
     Active Substance: BROLUCIZUMAB-DBLL
     Dosage: UNK (LEFT EYE) (RIGHT EYE)
     Route: 065
     Dates: start: 20240730
  3. BEOVU [Suspect]
     Active Substance: BROLUCIZUMAB-DBLL
     Dosage: UNK (LEFT EYE) (RIGHT EYE)
     Route: 065
     Dates: start: 20240919

REACTIONS (4)
  - Subclavian vein occlusion [Recovering/Resolving]
  - Vision blurred [Recovering/Resolving]
  - Iridocyclitis [Recovering/Resolving]
  - Retinal vasculitis [Recovering/Resolving]

NARRATIVE: CASE EVENT DATE: 20241016
